FAERS Safety Report 8232346-3 (Version None)
Quarter: 2012Q1

REPORT INFORMATION
  Report Type: 
  Country: None (occurrence: None)
  Receive Date: 20120323
  Receipt Date: 20120315
  Transmission Date: 20120608
  Serious: Yes (Hospitalization)
  Sender: FDA-Public Use
  Company Number: US-GLAXOSMITHKLINE-A0958036A

PATIENT
  Age: 51 Year
  Sex: Male
  Weight: 93.2 kg

DRUGS (6)
  1. METOPROLOL SUCCINATE [Concomitant]
  2. AVANDIA [Suspect]
     Indication: DIABETES MELLITUS
     Route: 048
     Dates: start: 20020101, end: 20070701
  3. GLIPIZIDE [Concomitant]
  4. LEVOXYL [Concomitant]
  5. AVANDAMET [Suspect]
     Indication: DIABETES MELLITUS
     Route: 048
  6. ALTACE [Concomitant]

REACTIONS (3)
  - MYOCARDIAL INFARCTION [None]
  - ATRIAL FIBRILLATION [None]
  - CORONARY ARTERY DISEASE [None]
